FAERS Safety Report 13678782 (Version 2)
Quarter: 2017Q3

REPORT INFORMATION
  Report Type: Spontaneous
  Country: US (occurrence: US)
  Receive Date: 20170622
  Receipt Date: 20170714
  Transmission Date: 20171127
  Serious: Yes (Hospitalization)
  Sender: FDA-Public Use
  Company Number: US-GILEAD-2017-0279048

PATIENT
  Age: 58 Year
  Sex: Male
  Weight: 127.44 kg

DRUGS (1)
  1. HARVONI [Suspect]
     Active Substance: LEDIPASVIR\SOFOSBUVIR
     Indication: HEPATITIS C
     Dosage: UNK
     Route: 048
     Dates: start: 20161202, end: 20170227

REACTIONS (1)
  - Intervertebral disc degeneration [Unknown]

NARRATIVE: CASE EVENT DATE: 20170114
